FAERS Safety Report 7726643 (Version 5)
Quarter: 2013Q2

REPORT INFORMATION
  Report Type: Report from Study
  Country: DO (occurrence: DO)
  Receive Date: 20101221
  Receipt Date: 20130430
  Transmission Date: 20140414
  Serious: Yes (Other)
  Sender: FDA-Public Use
  Company Number: DO-BRISTOL-MYERS SQUIBB COMPANY-15445471

PATIENT
  Age: 20 Year
  Sex: Male
  Weight: 59.87 kg

DRUGS (6)
  1. ATAZANAVIR [Suspect]
     Indication: HIV INFECTION
     Route: 048
     Dates: start: 20101005, end: 20101203
  2. TRUVADA [Suspect]
     Indication: HIV INFECTION
     Route: 048
     Dates: start: 20101005, end: 20101203
  3. COBICISTAT [Suspect]
     Indication: HIV INFECTION
     Route: 048
     Dates: start: 20121005, end: 20121203
  4. RANITIDINE [Concomitant]
     Indication: HYPERCHLORHYDRIA
     Dates: start: 20101019
  5. PARACETAMOL [Concomitant]
     Indication: HEADACHE
     Dates: start: 201008
  6. MULTIVITAMINS [Concomitant]
     Indication: SUPPLEMENTATION THERAPY
     Dates: start: 201008

REACTIONS (1)
  - Rhabdomyolysis [Recovered/Resolved]
